FAERS Safety Report 5418193-6 (Version None)
Quarter: 2007Q3

REPORT INFORMATION
  Report Type: 
  Country: None (occurrence: None)
  Receive Date: 20070817
  Receipt Date: 20070810
  Transmission Date: 20080115
  Serious: Yes (Hospitalization)
  Sender: FDA-Public Use
  Company Number: US-ELI_LILLY_AND_COMPANY-US200708002302

PATIENT
  Age: 79 Year
  Sex: Female

DRUGS (3)
  1. BYETTA [Suspect]
     Indication: TYPE 2 DIABETES MELLITUS
     Dosage: 10 UG, 2/D
     Route: 058
  2. BYETTA [Suspect]
     Dosage: 250 UG, OTHER
     Route: 065
     Dates: start: 20070809, end: 20070809
  3. GLIPIZIDE [Concomitant]
     Indication: DIABETES MELLITUS
     Dosage: UNK, UNKNOWN

REACTIONS (5)
  - ACCIDENTAL OVERDOSE [None]
  - HOSPITALISATION [None]
  - MEDICATION ERROR [None]
  - NAUSEA [None]
  - VOMITING [None]
